FAERS Safety Report 6727194-7 (Version None)
Quarter: 2010Q2

REPORT INFORMATION
  Report Type: 
  Country: None (occurrence: None)
  Receive Date: 20100512
  Receipt Date: 20100119
  Transmission Date: 20101027
  Serious: No
  Sender: FDA-Public Use
  Company Number: 1000011367

PATIENT
  Age: 63 Year
  Sex: Male

DRUGS (9)
  1. SAVELLA [Suspect]
     Indication: PAIN
     Dosage: SEE IMAGE
     Route: 048
     Dates: start: 20100112, end: 20100112
  2. SAVELLA [Suspect]
     Indication: PAIN
     Dosage: SEE IMAGE
     Route: 048
     Dates: start: 20100113, end: 20100114
  3. SAVELLA [Suspect]
     Indication: PAIN
     Dosage: SEE IMAGE
     Route: 048
     Dates: start: 20100115, end: 20100118
  4. SAVELLA [Suspect]
     Indication: PAIN
     Dosage: SEE IMAGE
     Route: 048
     Dates: start: 20100119
  5. OXYCONTIN [Concomitant]
  6. ALEVE (CAPLET) [Concomitant]
  7. WARFARIN SODIUM [Concomitant]
  8. LORAZEPAM [Concomitant]
  9. ZETIA [Concomitant]

REACTIONS (2)
  - FEELING COLD [None]
  - HYPERHIDROSIS [None]
